FAERS Safety Report 13707378 (Version 9)
Quarter: 2018Q1

REPORT INFORMATION
  Report Type: Report from Study
  Country: None (occurrence: ES)
  Receive Date: 20170630
  Receipt Date: 20180328
  Transmission Date: 20180508
  Serious: Yes (Hospitalization, Other)
  Sender: FDA-Public Use
  Company Number: ES-ABBVIE-17K-144-2025364-00

PATIENT
  Age: 84 Year
  Sex: Female
  Weight: 45 kg

DRUGS (2)
  1. DUODOPA [Suspect]
     Active Substance: CARBIDOPA\LEVODOPA
     Route: 050
  2. DUODOPA [Suspect]
     Active Substance: CARBIDOPA\LEVODOPA
     Indication: PARKINSON^S DISEASE
     Route: 050
     Dates: start: 20091026, end: 20170926

REACTIONS (14)
  - Dysphagia [Not Recovered/Not Resolved]
  - Cachexia [Recovered/Resolved]
  - General physical health deterioration [Recovered/Resolved]
  - Skin maceration [Unknown]
  - Incorrect route of drug administration [Recovered/Resolved]
  - Stoma site erythema [Not Recovered/Not Resolved]
  - Device dislocation [Not Recovered/Not Resolved]
  - Loss of personal independence in daily activities [Unknown]
  - Stoma complication [Not Recovered/Not Resolved]
  - Stoma site infection [Recovered/Resolved]
  - Freezing phenomenon [Not Recovered/Not Resolved]
  - Underweight [Recovering/Resolving]
  - Dyskinesia [Not Recovered/Not Resolved]
  - Stoma site extravasation [Unknown]

NARRATIVE: CASE EVENT DATE: 20170529
